FAERS Safety Report 10238963 (Version 1)
Quarter: 2014Q2

REPORT INFORMATION
  Report Type: Spontaneous
  Country: US (occurrence: US)
  Receive Date: 20140616
  Receipt Date: 20140616
  Transmission Date: 20141212
  Serious: Yes (Other)
  Sender: FDA-Public Use
  Company Number: US-BAYER-2014-087931

PATIENT
  Age: 67 Year
  Sex: Female

DRUGS (3)
  1. ULTRAVIST [Suspect]
     Indication: COMPUTERISED TOMOGRAM
     Dosage: 100 ML, ONCE
     Route: 042
     Dates: start: 20140610, end: 20140610
  2. ULTRAVIST [Suspect]
     Indication: COMPUTERISED TOMOGRAM THORAX
  3. ULTRAVIST [Suspect]
     Indication: COMPUTERISED TOMOGRAM ABDOMEN

REACTIONS (4)
  - Anaphylactic reaction [None]
  - Sneezing [None]
  - Generalised erythema [None]
  - Chills [None]
